FAERS Safety Report 10153530 (Version 4)
Quarter: 2014Q3

REPORT INFORMATION
  Report Type: Spontaneous
  Country: BR (occurrence: BR)
  Receive Date: 20140505
  Receipt Date: 20140912
  Transmission Date: 20150326
  Serious: Yes (Other)
  Sender: FDA-Public Use
  Company Number: PHHY2014BR053866

PATIENT
  Sex: Male
  Weight: 5 kg

DRUGS (7)
  1. VISKEN [Suspect]
     Active Substance: PINDOLOL
     Dosage: MATERNAL DOSE 5 MG, (EVERY 12 HRS/TWICE A DAY)
     Route: 064
  2. LOSARTAN [Suspect]
     Active Substance: LOSARTAN
     Dosage: MATERNAL DOSE 1 DF, (50 MG) DAILY
     Route: 064
  3. VISKEN [Suspect]
     Active Substance: PINDOLOL
     Dosage: MATERNAL DOSE  0.5 DF (10 MG, (TWICE A DAY)
     Route: 064
  4. METILDOPA [Concomitant]
     Active Substance: METHYLDOPA
     Dosage: MATERNAL DOSE 4 DF, (250 MG) DAILY EVERY 6 HRS
     Route: 064
  5. HYDROCHLOROTHIAZIDE. [Suspect]
     Active Substance: HYDROCHLOROTHIAZIDE
     Dosage: MATERNAL DOSE 1 DF, (50 MG) DAILY
     Route: 064
  6. PURAN [Concomitant]
     Active Substance: LEVOTHYROXINE SODIUM
     Dosage: MATERNAL DOSE 1 DF (175 MG) IN FASTING
     Route: 064
  7. AAS [Concomitant]
     Active Substance: ASPIRIN
     Dosage: MATERNAL DOSE 1 DF, LUNCH TIME
     Route: 064

REACTIONS (5)
  - Foetal exposure during pregnancy [Unknown]
  - Premature baby [Unknown]
  - Low birth weight baby [Unknown]
  - Scrotal oedema [Not Recovered/Not Resolved]
  - Cardiac murmur [Not Recovered/Not Resolved]
